FAERS Safety Report 14234897 (Version 1)
Quarter: 2017Q4

REPORT INFORMATION
  Report Type: Spontaneous
  Country: US (occurrence: US)
  Receive Date: 20171129
  Receipt Date: 20171129
  Transmission Date: 20180321
  Serious: No
  Sender: FDA-Public Use
  Company Number: US-LUPIN PHARMACEUTICALS INC.-2016-04805

PATIENT
  Sex: Female

DRUGS (1)
  1. CLEARLAX [Suspect]
     Active Substance: POLYETHYLENE GLYCOL 3350
     Indication: GASTROINTESTINAL MOTILITY DISORDER
     Dosage: UNK UNK,QD,
     Route: 065
     Dates: start: 20160131, end: 20160131

REACTIONS (1)
  - Muscle spasms [Unknown]

NARRATIVE: CASE EVENT DATE: 20160201
